FAERS Safety Report 9133562 (Version 2)
Quarter: 2013Q1

REPORT INFORMATION
  Report Type: Report from Study
  Country: DE (occurrence: DE)
  Receive Date: 20130301
  Receipt Date: 20130304
  Transmission Date: 20140127
  Serious: Yes (Hospitalization)
  Sender: FDA-Public Use
  Company Number: DE-ABBOTT-13P-062-1055057-00

PATIENT
  Sex: Female
  Weight: 100 kg

DRUGS (3)
  1. HUMIRA [Suspect]
     Indication: PSORIASIS
     Route: 058
     Dates: start: 200901, end: 20090518
  2. HUMIRA [Suspect]
     Route: 058
     Dates: start: 20100317, end: 20121231
  3. HUMIRA [Suspect]
     Route: 058
     Dates: start: 20130204

REACTIONS (1)
  - Myocardial infarction [Recovered/Resolved]
